FAERS Safety Report 25674208 (Version 1)
Quarter: 2025Q3

REPORT INFORMATION
  Report Type: Spontaneous
  Country: US (occurrence: None)
  Receive Date: 20250813
  Receipt Date: 20250813
  Transmission Date: 20251021
  Serious: No
  Sender: ENCUBE ETHICALS
  Company Number: US-Encube-002119

PATIENT
  Sex: Female

DRUGS (1)
  1. PERMETHRIN [Suspect]
     Active Substance: PERMETHRIN
     Indication: Scabies
     Dosage: USED ONCE A WEEK FOR THREE WEEKS

REACTIONS (4)
  - Application site pain [Not Recovered/Not Resolved]
  - Treatment failure [Unknown]
  - Application site erythema [Not Recovered/Not Resolved]
  - Product use issue [Unknown]

NARRATIVE: CASE EVENT DATE: 20250801
